FAERS Safety Report 6842470-5 (Version None)
Quarter: 2010Q3

REPORT INFORMATION
  Report Type: 
  Country: None (occurrence: None)
  Receive Date: 20100714
  Receipt Date: 20070906
  Transmission Date: 20110219
  Serious: No
  Sender: FDA-Public Use
  Company Number: US-PFIZER INC-2007063314

PATIENT
  Sex: Female
  Weight: 60.9 kg

DRUGS (3)
  1. CHANTIX [Suspect]
     Indication: SMOKING CESSATION THERAPY
     Dates: start: 20070708
  2. ADVIL LIQUI-GELS [Concomitant]
     Indication: PAIN
  3. GINGER [Concomitant]
     Indication: NAUSEA

REACTIONS (4)
  - DECREASED APPETITE [None]
  - INSOMNIA [None]
  - MEDICATION ERROR [None]
  - NAUSEA [None]
